FAERS Safety Report 6466130-8 (Version None)
Quarter: 2009Q4

REPORT INFORMATION
  Report Type: 
  Country: None (occurrence: None)
  Receive Date: 20091202
  Receipt Date: 20091120
  Transmission Date: 20100525
  Serious: Yes (Hospitalization, Other)
  Sender: FDA-Public Use
  Company Number: US-ELI_LILLY_AND_COMPANY-US200911006185

PATIENT
  Age: 82 Year
  Sex: Female

DRUGS (16)
  1. FORTEO [Suspect]
     Dosage: 20 UG, DAILY (1/D)
     Dates: start: 20090916
  2. FORTEO [Suspect]
     Dosage: 20 UG, DAILY (1/D)
     Dates: start: 20090919
  3. SPIRIVA [Concomitant]
  4. LEVOXINE [Concomitant]
     Dosage: 5 MG, DAILY (1/D)
  5. FLOVENT [Concomitant]
  6. OMEPRAZOLE [Concomitant]
     Indication: GASTROOESOPHAGEAL REFLUX DISEASE
  7. SIMVASTATIN [Concomitant]
     Dosage: 40 MG, UNK
  8. SINGULAIR [Concomitant]
     Dosage: 10 MG, UNK
  9. LEVOTHYROXINE [Concomitant]
     Indication: THYROID DISORDER
     Dosage: 75 MG, UNK
  10. LISINOPRIL [Concomitant]
     Dosage: 5 MG, UNK
  11. ASPIRIN [Concomitant]
     Dosage: 81 MG, UNK
  12. CARVEDILOL [Concomitant]
  13. VITAMIN D [Concomitant]
  14. CALCIUM [Concomitant]
  15. FISH OIL [Concomitant]
  16. ZOCOR [Concomitant]

REACTIONS (9)
  - ASTHENIA [None]
  - CHRONIC OBSTRUCTIVE PULMONARY DISEASE [None]
  - DYSPNOEA [None]
  - FACE INJURY [None]
  - FALL [None]
  - GAIT DISTURBANCE [None]
  - HEMIPARESIS [None]
  - PAIN IN EXTREMITY [None]
  - RHINORRHOEA [None]
